FAERS Safety Report 13242702 (Version 1)
Quarter: 2017Q1

REPORT INFORMATION
  Report Type: Spontaneous
  Country: US (occurrence: US)
  Receive Date: 20170216
  Receipt Date: 20170216
  Transmission Date: 20170428
  Serious: Yes (Other)
  Sender: FDA-Public Use
  Company Number: US-PFIZER INC-2017067740

PATIENT
  Age: 62 Year
  Sex: Male
  Weight: 77 kg

DRUGS (1)
  1. INSPRA [Suspect]
     Active Substance: EPLERENONE
     Indication: HYPERALDOSTERONISM
     Dosage: 12.5 MG, UNK
     Dates: start: 20170208

REACTIONS (6)
  - Malaise [Unknown]
  - Blood pressure increased [Not Recovered/Not Resolved]
  - Somnolence [Recovered/Resolved]
  - Diarrhoea [Recovered/Resolved]
  - Heart rate increased [Not Recovered/Not Resolved]
  - Flushing [Recovered/Resolved]

NARRATIVE: CASE EVENT DATE: 20170208
